FAERS Safety Report 24015961 (Version 1)
Quarter: 2024Q2

REPORT INFORMATION
  Report Type: Spontaneous
  Country: US (occurrence: US)
  Receive Date: 20240626
  Receipt Date: 20240626
  Transmission Date: 20240715
  Serious: Yes (Other)
  Sender: FDA-Public Use
  Company Number: US-BRISTOL-MYERS SQUIBB COMPANY-2024-099383

PATIENT
  Sex: Male

DRUGS (1)
  1. OPDIVO [Suspect]
     Active Substance: NIVOLUMAB
     Indication: Malignant melanoma
     Dosage: DOSE : UNKNOWN;     FREQ : ONCE A MONTH
     Dates: start: 2019

REACTIONS (3)
  - Hypertension [Unknown]
  - Arthropathy [Unknown]
  - Renal injury [Unknown]
